FAERS Safety Report 16062605 (Version 1)
Quarter: 2019Q1

REPORT INFORMATION
  Report Type: Spontaneous
  Country: CN (occurrence: CN)
  Receive Date: 20190312
  Receipt Date: 20190312
  Transmission Date: 20190418
  Serious: Yes (Other)
  Sender: FDA-Public Use
  Company Number: CN-PFIZER INC-2019097054

PATIENT
  Age: 31 Year
  Sex: Female

DRUGS (9)
  1. PROPOFOL. [Concomitant]
     Active Substance: PROPOFOL
     Dosage: 30 ML/H PUMP
  2. SUFENTANIL [Concomitant]
     Active Substance: SUFENTANIL
     Indication: ANAESTHESIA
     Dosage: 15 UG, UNK
  3. SEVOFLURANE. [Concomitant]
     Active Substance: SEVOFLURANE
     Indication: ANAESTHESIA
     Dosage: 3%
     Route: 055
  4. PROPOFOL. [Concomitant]
     Active Substance: PROPOFOL
     Indication: ANAESTHESIA
     Dosage: 120 MG, UNK
     Route: 042
  5. REMIFENTANIL [Concomitant]
     Active Substance: REMIFENTANIL
     Indication: ANAESTHESIA
     Dosage: 0.1 UG/KG*MIN
  6. SCOLINE [Concomitant]
     Dosage: 100 MG, UNK
     Route: 042
  7. HEMABATE [Suspect]
     Active Substance: CARBOPROST TROMETHAMINE
     Indication: UTERINE HYPOTONUS
     Dosage: 250 UG, UNK
     Route: 015
  8. OXYTOCIN. [Suspect]
     Active Substance: OXYTOCIN
     Indication: UTERINE HYPOTONUS
     Dosage: 10 IU, UNK
     Route: 015
  9. VECURONIUM BROMIDE. [Concomitant]
     Active Substance: VECURONIUM BROMIDE
     Indication: ANAESTHESIA
     Dosage: 2 MG, UNK

REACTIONS (3)
  - Carotid aneurysm rupture [Unknown]
  - Blood pressure increased [Recovering/Resolving]
  - Cerebral haemorrhage [Unknown]
